FAERS Safety Report 25502334 (Version 1)
Quarter: 2025Q3

REPORT INFORMATION
  Report Type: Spontaneous
  Country: EU (occurrence: EU)
  Receive Date: 20250702
  Receipt Date: 20250702
  Transmission Date: 20251021
  Serious: Yes (Disabling)
  Sender: SAMSUNG BIOEPIS
  Company Number: None

PATIENT
  Age: 58 Year
  Sex: Male

DRUGS (1)
  1. IMRALDI [Suspect]
     Active Substance: ADALIMUMAB
     Indication: Chorioretinitis
     Route: 058
     Dates: start: 20250404, end: 20250602

REACTIONS (4)
  - Paraesthesia [Unknown]
  - Insomnia [Unknown]
  - Myalgia [Unknown]
  - Off label use [Unknown]

NARRATIVE: CASE EVENT DATE: 20250602
